FAERS Safety Report 8286634-5 (Version None)
Quarter: 2012Q2

REPORT INFORMATION
  Report Type: 
  Country: None (occurrence: None)
  Receive Date: 20120416
  Receipt Date: 20120407
  Transmission Date: 20120825
  Serious: Yes (Hospitalization)
  Sender: FDA-Public Use
  Company Number: US-JNJFOC-20120403803

PATIENT
  Age: 40 Year
  Sex: Female
  Weight: 65 kg

DRUGS (6)
  1. CYMBALTA [Concomitant]
     Indication: DEPRESSION
     Dosage: DENIES TAKING FOR SEVERAL DAYS.
     Route: 065
  2. ABILIFY [Concomitant]
     Indication: ANXIETY
     Dosage: DENIES TAKING FOR SEVERAL DAYS.
     Route: 065
  3. ABILIFY [Concomitant]
     Indication: DEPRESSION
     Dosage: DENIES TAKING FOR SEVERAL DAYS.
     Route: 065
  4. ACETAMINOPHEN [Suspect]
     Indication: PRODUCT USED FOR UNKNOWN INDICATION
     Dosage: PATIENT ESTIMATES SHE INJESTED 3/4 CUP OF PILLS
     Route: 048
  5. KEPPRA [Concomitant]
     Indication: CONVULSION
     Dosage: DENIES TAKING FOR SEVERAL DAYS.
     Route: 065
  6. ACETAMINOPHEN [Suspect]
     Route: 048

REACTIONS (3)
  - LIVER FUNCTION TEST ABNORMAL [None]
  - OVERDOSE [None]
  - INTENTIONAL SELF-INJURY [None]
